FAERS Safety Report 19218548 (Version 1)
Quarter: 2021Q2

REPORT INFORMATION
  Report Type: Spontaneous
  Country: US (occurrence: US)
  Receive Date: 20210505
  Receipt Date: 20210505
  Transmission Date: 20210717
  Serious: Yes (Other)
  Sender: FDA-Public Use
  Company Number: US-SLATE RUN PHARMACEUTICALS-21US000477

PATIENT

DRUGS (3)
  1. CEPHALEXIN [CEFALEXIN] [Concomitant]
     Active Substance: CEPHALEXIN
     Indication: PRETERM PREMATURE RUPTURE OF MEMBRANES
     Route: 065
  2. AZITHROMYCIN USP [Suspect]
     Active Substance: AZITHROMYCIN
     Indication: PRETERM PREMATURE RUPTURE OF MEMBRANES
     Route: 065
  3. CORTICOSTEROIDS [Concomitant]
     Active Substance: CORTICOSTEROID NOS
     Indication: PRETERM PREMATURE RUPTURE OF MEMBRANES
     Dosage: 1 DOSAGE FORM (ONE COURSE)
     Route: 065

REACTIONS (3)
  - Off label use [Unknown]
  - Premature labour [Recovered/Resolved]
  - Maternal exposure during pregnancy [Recovered/Resolved]
